FAERS Safety Report 9687094 (Version 1)
Quarter: 2013Q4

REPORT INFORMATION
  Report Type: Report from Study
  Country: US (occurrence: US)
  Receive Date: 20131113
  Receipt Date: 20131113
  Transmission Date: 20140711
  Serious: Yes (Other)
  Sender: FDA-Public Use
  Company Number: US-ABBVIE-13P-163-1166442-00

PATIENT
  Age: 59 Year
  Sex: 0
  Weight: 94.43 kg

DRUGS (1)
  1. HUMIRA [Suspect]
     Indication: RHEUMATOID ARTHRITIS
     Route: 058
     Dates: start: 2012

REACTIONS (9)
  - Exostosis [Not Recovered/Not Resolved]
  - Foot operation [Not Recovered/Not Resolved]
  - Localised infection [Not Recovered/Not Resolved]
  - Sinus congestion [Recovering/Resolving]
  - Injection site pain [Recovering/Resolving]
  - Influenza like illness [Recovering/Resolving]
  - Fatigue [Recovering/Resolving]
  - Nasopharyngitis [Recovering/Resolving]
  - Influenza [Recovering/Resolving]
